FAERS Safety Report 9249011 (Version 1)
Quarter: 2013Q2

REPORT INFORMATION
  Report Type: Spontaneous
  Country: US (occurrence: None)
  Receive Date: 20130419
  Receipt Date: 20130419
  Transmission Date: 20140414
  Serious: No
  Sender: FDA-Public Use
  Company Number: None

PATIENT
  Age: 50 Year
  Sex: Female
  Weight: 55.5 kg

DRUGS (1)
  1. ENDOCET [Suspect]
     Indication: BACK PAIN
     Dosage: 1 PILL EVERY 4 HOURS ORAL
     Route: 048
     Dates: start: 201204

REACTIONS (2)
  - Drug effect decreased [None]
  - Product substitution issue [None]
